FAERS Safety Report 9903337 (Version 2)
Quarter: 2015Q3

REPORT INFORMATION
  Report Type: Spontaneous
  Country: US (occurrence: US)
  Receive Date: 20140217
  Receipt Date: 20150810
  Transmission Date: 20151125
  Serious: No
  Sender: FDA-Public Use
  Company Number: US-GILEAD-2011-0045482

PATIENT
  Age: 69 Year
  Sex: Female

DRUGS (11)
  1. COUMADIN [Concomitant]
     Active Substance: WARFARIN SODIUM
  2. PANTOPRAZOLE [Concomitant]
     Active Substance: PANTOPRAZOLE SODIUM
  3. REVATIO [Concomitant]
     Active Substance: SILDENAFIL CITRATE
  4. SPIRONOLACTONE. [Concomitant]
     Active Substance: SPIRONOLACTONE
  5. LEVOTHROID [Concomitant]
     Active Substance: LEVOTHYROXINE SODIUM
  6. LASIX [Concomitant]
     Active Substance: FUROSEMIDE
  7. QVAR [Concomitant]
     Active Substance: BECLOMETHASONE DIPROPIONATE
  8. PREVACOR [Concomitant]
  9. PROAIR HFA [Concomitant]
     Active Substance: ALBUTEROL SULFATE
  10. LETAIRIS [Suspect]
     Active Substance: AMBRISENTAN
     Indication: PULMONARY HYPERTENSION
     Dosage: 5 MG, UNK
     Route: 048
     Dates: start: 201007
  11. AMLODIPINE [Concomitant]
     Active Substance: AMLODIPINE BESYLATE

REACTIONS (2)
  - Nervousness [Unknown]
  - Fatigue [Unknown]
